FAERS Safety Report 8370937-X (Version None)
Quarter: 2012Q2

REPORT INFORMATION
  Report Type: 
  Country: None (occurrence: None)
  Receive Date: 20120518
  Receipt Date: 20120507
  Transmission Date: 20120825
  Serious: Yes (Other)
  Sender: FDA-Public Use
  Company Number: JP-JNJFOC-20110903439

PATIENT
  Sex: Male

DRUGS (3)
  1. TRAMADOL HYDROCHLORIDE/ACETAMINOPHEN [Suspect]
     Indication: PAIN
     Dosage: 4 DF X 1 PER 1 DAY
     Route: 048
  2. TRAMADOL HYDROCHLORIDE/ACETAMINOPHEN [Suspect]
     Dosage: 6 DF X 1 PER 1 DAY
     Route: 048
  3. ANTIDEPRESSANT NOS [Concomitant]
     Route: 065

REACTIONS (3)
  - STOMATITIS [None]
  - PANCREATITIS ACUTE [None]
  - SOMNOLENCE [None]
